FAERS Safety Report 7240980-2 (Version None)
Quarter: 2011Q1

REPORT INFORMATION
  Report Type: 
  Country: None (occurrence: None)
  Receive Date: 20110124
  Receipt Date: 20110111
  Transmission Date: 20110831
  Serious: Yes (Hospitalization, Other)
  Sender: FDA-Public Use
  Company Number: US-ELI_LILLY_AND_COMPANY-US201101004592

PATIENT
  Sex: Female
  Weight: 61.224 kg

DRUGS (8)
  1. PRASUGREL HYDROCHLORIDE [Suspect]
     Dosage: 10 MG, DAILY (1/D)
     Dates: start: 20100521
  2. ZOCOR [Concomitant]
     Indication: DYSLIPIDAEMIA
     Dosage: 40 MG, DAILY (1/D)
     Route: 048
  3. HEPARIN [Concomitant]
     Indication: ANTICOAGULANT THERAPY
     Dosage: 15000 IU, 3/D
     Route: 058
     Dates: start: 20100917
  4. PRASUGREL HYDROCHLORIDE [Suspect]
     Indication: ACUTE CORONARY SYNDROME
     Dosage: 60 MG, ONCE
     Dates: start: 20100521, end: 20100521
  5. TOPROL-XL [Concomitant]
     Indication: HYPERTENSION
     Dosage: 25 MG, DAILY (1/D)
     Route: 048
  6. ASPIRIN [Concomitant]
     Dosage: 325 MG, DAILY (1/D)
  7. ASPIRIN [Concomitant]
     Dosage: 81 MG, DAILY (1/D)
  8. XANAX [Concomitant]
     Indication: ANXIETY
     Dosage: 1 MG, AS NEEDED
     Route: 048
     Dates: start: 20100517

REACTIONS (1)
  - CHEST PAIN [None]
